FAERS Safety Report 10445271 (Version 3)
Quarter: 2015Q1

REPORT INFORMATION
  Report Type: Spontaneous
  Country: US (occurrence: US)
  Receive Date: 20140910
  Receipt Date: 20150313
  Transmission Date: 20150720
  Serious: Yes (Death, Hospitalization, Other)
  Sender: FDA-Public Use
  Company Number: US-009507513-1409USA004491

PATIENT
  Sex: Male
  Weight: 120.18 kg

DRUGS (13)
  1. BYETTA [Suspect]
     Active Substance: EXENATIDE
     Dosage: UNK
     Dates: start: 2013
  2. TIMOLOL [Concomitant]
     Active Substance: TIMOLOL
     Dosage: UNK
     Dates: start: 20081030
  3. SPIRIVA [Concomitant]
     Active Substance: TIOTROPIUM BROMIDE MONOHYDRATE
     Dosage: UNK
     Dates: start: 20081024
  4. LIPITOR [Concomitant]
     Active Substance: ATORVASTATIN CALCIUM
     Dosage: UNK
     Dates: start: 20101024
  5. ASPIRIN. [Concomitant]
     Active Substance: ASPIRIN
     Dosage: 81 MG, UNK
     Dates: start: 20081024
  6. TERAZOSIN [Concomitant]
     Active Substance: TERAZOSIN\TERAZOSIN HYDROCHLORIDE
     Dosage: UNK
     Dates: start: 20101024
  7. POTASSIUM CHLORIDE. [Concomitant]
     Active Substance: POTASSIUM CHLORIDE
     Dosage: 20 MEQ, QD
     Dates: start: 20081024
  8. ATROVENT [Concomitant]
     Active Substance: IPRATROPIUM BROMIDE
     Dosage: UNK
     Dates: start: 20081030
  9. JANUMET [Suspect]
     Active Substance: METFORMIN HYDROCHLORIDE\SITAGLIPTIN PHOSPHATE
     Indication: TYPE 2 DIABETES MELLITUS
     Dosage: 50/10000 MG, BID
     Route: 048
     Dates: start: 20081024, end: 20121214
  10. ADVAIR HFA [Concomitant]
     Active Substance: FLUTICASONE PROPIONATE\SALMETEROL XINAFOATE
     Dosage: UNK
     Dates: start: 20081024
  11. KLOR-CON [Concomitant]
     Active Substance: POTASSIUM CHLORIDE
     Dosage: 20 MG, UNK
     Dates: start: 20101030
  12. LATANOPROST. [Concomitant]
     Active Substance: LATANOPROST
     Dosage: UNK
     Dates: start: 20081030
  13. ALBUTEROL. [Concomitant]
     Active Substance: ALBUTEROL
     Dosage: UNK
     Dates: start: 20081024

REACTIONS (39)
  - Metastases to liver [Unknown]
  - Hypertension [Unknown]
  - Pancreatic cyst [Unknown]
  - Carotid artery stent insertion [Unknown]
  - Vision blurred [Unknown]
  - Iron deficiency anaemia [Unknown]
  - Diverticulum intestinal [Unknown]
  - Pruritus [Unknown]
  - Headache [Unknown]
  - Pulmonary interstitial emphysema syndrome [Unknown]
  - Asthma [Unknown]
  - Angiodysplasia [Unknown]
  - Skin graft [Not Recovered/Not Resolved]
  - Bronchitis [Unknown]
  - Chronic obstructive pulmonary disease [Not Recovered/Not Resolved]
  - Chronic obstructive pulmonary disease [Not Recovered/Not Resolved]
  - Type 2 diabetes mellitus [Unknown]
  - Disease complication [Unknown]
  - Laparoscopy [Unknown]
  - Orthopnoea [Unknown]
  - Hepatic cirrhosis [Unknown]
  - Pancreatic carcinoma metastatic [Fatal]
  - Cardiac failure congestive [Unknown]
  - Umbilical hernia [Unknown]
  - Constipation [Unknown]
  - Asthma [Unknown]
  - Cellulitis [Unknown]
  - Dehydration [Unknown]
  - Large intestine polyp [Unknown]
  - Cardiac failure congestive [Unknown]
  - Pneumonia [Unknown]
  - Diabetic neuropathy [Unknown]
  - Blood cholesterol increased [Unknown]
  - Carotid artery stent insertion [Unknown]
  - Prostatic specific antigen increased [Unknown]
  - Cardiomegaly [Unknown]
  - Abdominal hernia [Unknown]
  - Drug ineffective [Unknown]
  - Oedema peripheral [Unknown]

NARRATIVE: CASE EVENT DATE: 20081024
